FAERS Safety Report 25602767 (Version 1)
Quarter: 2025Q3

REPORT INFORMATION
  Report Type: Report from Study
  Country: US (occurrence: US)
  Receive Date: 20250724
  Receipt Date: 20250724
  Transmission Date: 20251020
  Serious: Yes (Hospitalization)
  Sender: TAKEDA
  Company Number: US-TAKEDA-2024TUS124453

PATIENT
  Age: 78 Year
  Sex: Male

DRUGS (5)
  1. TEDUGLUTIDE [Suspect]
     Active Substance: TEDUGLUTIDE
     Indication: Short-bowel syndrome
     Dosage: UNK UNK, QD
  2. TEDUGLUTIDE [Suspect]
     Active Substance: TEDUGLUTIDE
  3. TEDUGLUTIDE [Suspect]
     Active Substance: TEDUGLUTIDE
     Dosage: UNK UNK, QD
  4. TEDUGLUTIDE [Suspect]
     Active Substance: TEDUGLUTIDE
  5. TPN [Suspect]
     Active Substance: AMINO ACIDS\DEXTROSE\ELECTROLYTES NOS\SOYBEAN OIL
     Indication: Product used for unknown indication

REACTIONS (13)
  - Weight decreased [Unknown]
  - Dyspepsia [Recovered/Resolved]
  - Abnormal dreams [Unknown]
  - Anxiety [Unknown]
  - Flatulence [Unknown]
  - Abdominal pain [Unknown]
  - Dehydration [Unknown]
  - Oesophageal disorder [Unknown]
  - Weight gain poor [Unknown]
  - Stoma site pain [Unknown]
  - Stomal hernia [Unknown]
  - Fistula [Unknown]
  - Nausea [Unknown]

NARRATIVE: CASE EVENT DATE: 20241210
